FAERS Safety Report 11870988 (Version 3)
Quarter: 2016Q1

REPORT INFORMATION
  Report Type: Spontaneous
  Country: JP (occurrence: JP)
  Receive Date: 20151228
  Receipt Date: 20160316
  Transmission Date: 20160526
  Serious: Yes (Hospitalization, Other)
  Sender: FDA-Public Use
  Company Number: JP-JNJFOC-20151222262

PATIENT
  Age: 78 Year
  Sex: Male
  Weight: 69 kg

DRUGS (14)
  1. DECADRON [Suspect]
     Active Substance: DEXAMETHASONE
     Indication: PRODUCT USED FOR UNKNOWN INDICATION
     Route: 048
     Dates: start: 20151130, end: 20151130
  2. ADALAT [Concomitant]
     Active Substance: NIFEDIPINE
     Route: 048
  3. ZYLORIC [Concomitant]
     Active Substance: ALLOPURINOL
     Route: 048
  4. DECADRON [Suspect]
     Active Substance: DEXAMETHASONE
     Indication: PRODUCT USED FOR UNKNOWN INDICATION
     Route: 048
     Dates: start: 20151201
  5. DECADRON [Suspect]
     Active Substance: DEXAMETHASONE
     Indication: PRODUCT USED FOR UNKNOWN INDICATION
     Route: 048
     Dates: start: 20140619, end: 20151118
  6. PREDNISOLONE. [Concomitant]
     Active Substance: PREDNISOLONE
     Route: 065
  7. ARTIST [Concomitant]
     Active Substance: CARVEDILOL
     Route: 048
  8. SOLETON [Concomitant]
     Active Substance: ZALTOPROFEN
     Route: 048
  9. LYRICA [Concomitant]
     Active Substance: PREGABALIN
     Route: 048
  10. ZYTIGA [Suspect]
     Active Substance: ABIRATERONE ACETATE
     Indication: HORMONE-REFRACTORY PROSTATE CANCER
     Route: 048
     Dates: start: 20150622
  11. ISALON [Concomitant]
     Active Substance: UNSPECIFIED INGREDIENT
     Route: 048
  12. LIMAPROST ALFADEX [Concomitant]
     Active Substance: LIMAPROST
     Route: 048
  13. LIVALO [Concomitant]
     Active Substance: PITAVASTATIN CALCIUM
     Route: 048
  14. TAKELDA [Concomitant]
     Active Substance: ASPIRIN\LANSOPRAZOLE
     Route: 048

REACTIONS (4)
  - Decreased appetite [Recovered/Resolved]
  - Dehydration [Recovered/Resolved]
  - Malaise [Recovered/Resolved]
  - Blood alkaline phosphatase increased [Not Recovered/Not Resolved]

NARRATIVE: CASE EVENT DATE: 20150826
